FAERS Safety Report 11647543 (Version 1)
Quarter: 2015Q4

REPORT INFORMATION
  Report Type: Spontaneous
  Country: US (occurrence: US)
  Receive Date: 20151021
  Receipt Date: 20151021
  Transmission Date: 20160304
  Serious: No
  Sender: FDA-Public Use
  Company Number: US-BIO PRODUCTS LABORATORY LTD-1043223

PATIENT
  Age: 32 Year
  Sex: Female
  Weight: 132.45 kg

DRUGS (16)
  1. GAMMAPLEX [Suspect]
     Active Substance: HUMAN IMMUNOGLOBULIN G
     Indication: DEMYELINATING POLYNEUROPATHY
     Route: 042
     Dates: start: 20140519, end: 20141228
  2. LUNESTA [Concomitant]
     Active Substance: ESZOPICLONE
  3. TRILEPTAL [Concomitant]
     Active Substance: OXCARBAZEPINE
  4. NEXIUM [Concomitant]
     Active Substance: ESOMEPRAZOLE MAGNESIUM
  5. ASPIRIN. [Concomitant]
     Active Substance: ASPIRIN
  6. MS CONTIN [Concomitant]
     Active Substance: MORPHINE SULFATE
  7. LYRICA [Concomitant]
     Active Substance: PREGABALIN
  8. TOPAMAX [Concomitant]
     Active Substance: TOPIRAMATE
  9. ZOFRAN [Concomitant]
     Active Substance: ONDANSETRON HYDROCHLORIDE
  10. IMITREX [Concomitant]
     Active Substance: SUMATRIPTAN\SUMATRIPTAN SUCCINATE
  11. MOTRIN [Concomitant]
     Active Substance: IBUPROFEN
  12. BENADRYL [Concomitant]
     Active Substance: DIPHENHYDRAMINE HYDROCHLORIDE
  13. TYLENOL [Concomitant]
     Active Substance: ACETAMINOPHEN
  14. LOVENOX [Concomitant]
     Active Substance: ENOXAPARIN SODIUM
  15. WELLBUTRIN [Concomitant]
     Active Substance: BUPROPION HYDROCHLORIDE
  16. SOLU-MEDROL [Concomitant]
     Active Substance: METHYLPREDNISOLONE SODIUM SUCCINATE

REACTIONS (7)
  - Myalgia [Unknown]
  - Vomiting [Unknown]
  - Arthralgia [Unknown]
  - Injection site rash [Unknown]
  - Hyperhidrosis [Unknown]
  - Urticaria [Unknown]
  - Pruritus [Unknown]

NARRATIVE: CASE EVENT DATE: 20141219
